FAERS Safety Report 6834629-8 (Version None)
Quarter: 2010Q3

REPORT INFORMATION
  Report Type: 
  Country: None (occurrence: None)
  Receive Date: 20100712
  Receipt Date: 20070422
  Transmission Date: 20110219
  Serious: No
  Sender: FDA-Public Use
  Company Number: US-PFIZER INC-2007034190

PATIENT
  Age: 58 Year
  Sex: Female
  Weight: 68.95 kg

DRUGS (9)
  1. CHANTIX [Suspect]
     Dates: start: 20070418
  2. ALTACE [Concomitant]
     Indication: HYPERTENSION
  3. METOPROLOL [Concomitant]
     Indication: CARDIAC DISORDER
  4. NEXIUM [Concomitant]
     Indication: PAIN
  5. LASIX [Concomitant]
  6. TRAZODONE HYDROCHLORIDE [Concomitant]
     Indication: PAIN
  7. VALIUM [Concomitant]
     Indication: PAIN
  8. OXYCODONE HCL [Concomitant]
     Indication: PAIN
     Dosage: 5/325
  9. POTASSIUM [Concomitant]

REACTIONS (4)
  - ABDOMINAL PAIN UPPER [None]
  - FLATULENCE [None]
  - NAUSEA [None]
  - PAIN [None]
